FAERS Safety Report 25422056 (Version 6)
Quarter: 2025Q4

REPORT INFORMATION
  Report Type: Spontaneous
  Country: JP (occurrence: JP)
  Receive Date: 20250611
  Receipt Date: 20251006
  Transmission Date: 20260117
  Serious: Yes (Hospitalization, Other)
  Sender: BRISTOL-MYERS SQUIBB COMPANY
  Company Number: JP-BRISTOL-MYERS SQUIBB COMPANY-2025-081283

PATIENT
  Age: 7 Decade
  Sex: Male

DRUGS (5)
  1. YERVOY [Suspect]
     Active Substance: IPILIMUMAB
     Indication: Pleural mesothelioma malignant
     Dosage: TREATMENT WITH NIVOLUMAB AND IPILIMUMAB BEGAN IN SEPTEMBER OF X-2 YEAR
  2. OPDIVO [Suspect]
     Active Substance: NIVOLUMAB
     Indication: Pleural mesothelioma malignant
     Dosage: TREATMENT WITH NIVOLUMAB AND IPILIMUMAB BEGAN IN SEPTEMBER OF X-2 YEAR
  3. OPDIVO [Suspect]
     Active Substance: NIVOLUMAB
     Dosage: JANUARY OF X-1 YEAR
  4. OPDIVO [Suspect]
     Active Substance: NIVOLUMAB
     Dosage: AUGUST OF X-1 YEAR
  5. OPDIVO [Suspect]
     Active Substance: NIVOLUMAB
     Dosage: OCTOBER 11 OF X-1 YEAR

REACTIONS (2)
  - Pulmonary toxicity [Unknown]
  - Fulminant type 1 diabetes mellitus [Unknown]
